FAERS Safety Report 6300624-0 (Version None)
Quarter: 2009Q3

REPORT INFORMATION
  Report Type: 
  Country: None (occurrence: None)
  Receive Date: 20090806
  Receipt Date: 20081203
  Transmission Date: 20100115
  Serious: No
  Sender: FDA-Public Use
  Company Number: US-ABBOTT-08P-163-0490907-00

PATIENT
  Sex: Female
  Weight: 68.1 kg

DRUGS (5)
  1. DEPAKOTE ER [Suspect]
     Indication: HEADACHE
  2. DEPAKOTE ER [Suspect]
     Indication: DEPRESSION
  3. VALPROATE SEMISODIUM [Concomitant]
     Indication: HEADACHE
  4. VALPROATE SEMISODIUM [Concomitant]
     Indication: DEPRESSION
  5. THYROID TAB [Concomitant]
     Indication: DRUG USE FOR UNKNOWN INDICATION

REACTIONS (2)
  - FEELING ABNORMAL [None]
  - NAUSEA [None]
